FAERS Safety Report 5867121-8 (Version None)
Quarter: 2008Q3

REPORT INFORMATION
  Report Type: 
  Country: None (occurrence: None)
  Receive Date: 20080902
  Receipt Date: 20080827
  Transmission Date: 20090109
  Serious: Yes (Other)
  Sender: FDA-Public Use
  Company Number: JP-BAYER-200811976BYL

PATIENT

DRUGS (1)
  1. NEXAVAR [Suspect]
     Indication: LEIOMYOSARCOMA
     Route: 048

REACTIONS (1)
  - ILEUS [None]
